FAERS Safety Report 7791958-1 (Version None)
Quarter: 2011Q4

REPORT INFORMATION
  Report Type: 
  Country: None (occurrence: None)
  Receive Date: 20111003
  Receipt Date: 20110927
  Transmission Date: 20120403
  Serious: Yes (Other)
  Sender: FDA-Public Use
  Company Number: FR-PFIZER INC-2011229235

PATIENT
  Age: 38 Year
  Sex: Male

DRUGS (6)
  1. MYCOPHENOLATE MOFETIL (CELLCEPT) [Concomitant]
     Dosage: UNK
     Dates: start: 20050531
  2. CREON [Concomitant]
  3. PREDNISONE [Concomitant]
  4. VFEND [Suspect]
     Dosage: 200 MG, 2X/DAY
     Route: 048
     Dates: start: 20061016, end: 20110501
  5. PROGRAF [Concomitant]
     Dosage: UNK
     Dates: start: 20050905
  6. LEVOTHYROXINE SODIUM [Concomitant]

REACTIONS (1)
  - SQUAMOUS CELL CARCINOMA [None]
